FAERS Safety Report 16101323 (Version 1)
Quarter: 2019Q1

REPORT INFORMATION
  Report Type: Report from Study
  Country: CA (occurrence: CA)
  Receive Date: 20190321
  Receipt Date: 20190321
  Transmission Date: 20190418
  Serious: Yes (Hospitalization)
  Sender: FDA-Public Use
  Company Number: CA-PFIZER INC-2019119606

PATIENT
  Age: 48 Year
  Sex: Female

DRUGS (8)
  1. DEFERASIROX. [Suspect]
     Active Substance: DEFERASIROX
     Indication: CONGENITAL APLASTIC ANAEMIA
     Dosage: 900 MG, 1X/DAY
     Route: 048
  2. DESFERAL [Suspect]
     Active Substance: DEFEROXAMINE MESYLATE
     Indication: CONGENITAL APLASTIC ANAEMIA
     Dosage: 14 G, UNK
     Route: 042
  3. EXJADE [Suspect]
     Active Substance: DEFERASIROX
     Dosage: UNK
     Route: 048
  4. DESFERAL [Suspect]
     Active Substance: DEFEROXAMINE MESYLATE
     Indication: IRON OVERLOAD
     Dosage: UNK
  5. DEFERASIROX. [Suspect]
     Active Substance: DEFERASIROX
     Indication: CONGENITAL APLASTIC ANAEMIA
     Dosage: 1260 MG, UNK
     Route: 048
  6. DEFERASIROX. [Suspect]
     Active Substance: DEFERASIROX
     Dosage: 1500 MG, 2X/DAY
     Route: 048
  7. EXJADE [Suspect]
     Active Substance: DEFERASIROX
     Indication: CONGENITAL APLASTIC ANAEMIA
     Dosage: UNK
     Route: 048
  8. DEFEROXAMINE MESILATE [Suspect]
     Active Substance: DEFEROXAMINE MESYLATE
     Indication: CONGENITAL APLASTIC ANAEMIA
     Dosage: UNK
     Route: 042

REACTIONS (8)
  - Drug intolerance [Unknown]
  - Liver iron concentration increased [Unknown]
  - Neoplasm [Unknown]
  - Bacterial infection [Unknown]
  - Serum ferritin increased [Unknown]
  - Memory impairment [Unknown]
  - Abdominal discomfort [Unknown]
  - Malaise [Unknown]
